FAERS Safety Report 4682036-9 (Version None)
Quarter: 2005Q2

REPORT INFORMATION
  Report Type: 
  Country: None (occurrence: None)
  Receive Date: 20050606
  Receipt Date: 20050525
  Transmission Date: 20051028
  Serious: Yes (Death, Hospitalization)
  Sender: FDA-Public Use
  Company Number: DE-JNJFOC-20040105185

PATIENT
  Age: 51 Year
  Sex: Male

DRUGS (3)
  1. INFLIXIMAB [Suspect]
     Route: 042
  2. INFLIXIMAB [Suspect]
     Indication: CHONDRITIS
     Route: 042
  3. GLUCOCORTICOIDS [Concomitant]

REACTIONS (11)
  - ACUTE FEBRILE NEUTROPHILIC DERMATOSIS [None]
  - DISEASE RECURRENCE [None]
  - LUNG NEOPLASM [None]
  - MULTI-ORGAN FAILURE [None]
  - MYALGIA [None]
  - PNEUMONIA [None]
  - PYREXIA [None]
  - RENAL FAILURE [None]
  - RESPIRATORY FAILURE [None]
  - SEPSIS [None]
  - STAPHYLOCOCCAL ABSCESS [None]
